FAERS Safety Report 4793496-7 (Version None)
Quarter: 2005Q4

REPORT INFORMATION
  Report Type: 
  Country: None (occurrence: None)
  Receive Date: 20051011
  Receipt Date: 20050808
  Transmission Date: 20060501
  Serious: No
  Sender: FDA-Public Use
  Company Number: US-BRISTOL-MYERS SQUIBB COMPANY-13067574

PATIENT
  Age: 68 Year
  Sex: Male
  Weight: 79 kg

DRUGS (6)
  1. GLUCOPHAGE XR [Suspect]
     Indication: DIABETES MELLITUS NON-INSULIN-DEPENDENT
     Dosage: 1 500 MG TAB IN AM, 2 500 MG TABS IN PM
     Route: 048
  2. CARDIZEM [Concomitant]
  3. ECOTRIN [Concomitant]
  4. LIPITOR [Concomitant]
  5. ZETIA [Concomitant]
  6. GYMNEMA SYLVESTRE [Concomitant]

REACTIONS (2)
  - ABDOMINAL DISTENSION [None]
  - ABDOMINAL PAIN [None]
